FAERS Safety Report 8326007-X (Version None)
Quarter: 2012Q2

REPORT INFORMATION
  Report Type: 
  Country: None (occurrence: None)
  Receive Date: 20120501
  Receipt Date: 20110510
  Transmission Date: 20120825
  Serious: Yes (Other)
  Sender: FDA-Public Use
  Company Number: US-SANOFI-AVENTIS-2011SA027337

PATIENT
  Age: 43 Year
  Sex: Male

DRUGS (2)
  1. LANTUS [Suspect]
     Indication: TYPE 1 DIABETES MELLITUS
     Dosage: DOSE:40 UNIT(S)
     Route: 058
  2. APIDRA [Suspect]
     Indication: TYPE 1 DIABETES MELLITUS
     Dosage: PRODUCT START DATE 5 YEARS AGO
     Route: 065

REACTIONS (3)
  - WRONG DRUG ADMINISTERED [None]
  - MUSCLE STRAIN [None]
  - HYPOGLYCAEMIC SEIZURE [None]
